FAERS Safety Report 4373274-3 (Version None)
Quarter: 2004Q2

REPORT INFORMATION
  Report Type: 
  Country: None (occurrence: None)
  Receive Date: 20040608
  Receipt Date: 20040603
  Transmission Date: 20050107
  Serious: Yes (Hospitalization)
  Sender: FDA-Public Use
  Company Number: FR-GLAXOSMITHKLINE-B0334546A

PATIENT
  Age: 73 Year
  Sex: Female
  Weight: 60 kg

DRUGS (6)
  1. SERETIDE [Suspect]
     Route: 055
     Dates: end: 20040502
  2. MEPRONIZINE [Suspect]
     Dosage: 2UNIT PER DAY
     Route: 048
     Dates: end: 20040502
  3. MOPRAL [Suspect]
     Route: 048
     Dates: end: 20040502
  4. ZOCOR [Suspect]
     Route: 048
     Dates: end: 20040502
  5. FOSAMAX [Suspect]
     Dosage: 70MG WEEKLY
     Route: 048
     Dates: end: 20040502
  6. COZAAR [Suspect]
     Dosage: 50MG PER DAY
     Route: 048
     Dates: end: 20040502

REACTIONS (2)
  - COMA [None]
  - HYPONATRAEMIA [None]
